FAERS Safety Report 23167341 (Version 1)
Quarter: 2023Q4

REPORT INFORMATION
  Report Type: Spontaneous
  Country: CN (occurrence: CN)
  Receive Date: 20231109
  Receipt Date: 20231109
  Transmission Date: 20240110
  Serious: Yes (Hospitalization)
  Sender: FDA-Public Use
  Company Number: CN-PFIZER INC-202300352586

PATIENT
  Age: 60 Year
  Sex: Female

DRUGS (1)
  1. ZITHROMAX [Suspect]
     Active Substance: AZITHROMYCIN DIHYDRATE
     Indication: Pyrexia
     Dosage: 2 DF
     Route: 048
     Dates: start: 202310

REACTIONS (6)
  - Intentional product misuse [Unknown]
  - Atrial fibrillation [Unknown]
  - Heart rate irregular [Unknown]
  - Pneumonia [Unknown]
  - Gait inability [Unknown]
  - Cardiac discomfort [Unknown]

NARRATIVE: CASE EVENT DATE: 20231001
